FAERS Safety Report 13960822 (Version 1)
Quarter: 2017Q3

REPORT INFORMATION
  Report Type: Other
  Country: JP (occurrence: JP)
  Receive Date: 20170912
  Receipt Date: 20170912
  Transmission Date: 20171128
  Serious: Yes (Hospitalization)
  Sender: FDA-Public Use
  Company Number: JP-CELLTRION INC.-2017JP011549

PATIENT

DRUGS (12)
  1. INFLIXIMAB BS FOR I.V. INFUSION100 MG [NK] [Suspect]
     Active Substance: INFLIXIMAB
     Dosage: 400 MG/BODY/DAY
     Route: 042
     Dates: start: 20170310, end: 20170310
  2. INFLIXIMAB BS FOR I.V. INFUSION100 MG [NK] [Suspect]
     Active Substance: INFLIXIMAB
     Dosage: 400 MG/BODY/DAY
     Route: 042
     Dates: start: 20170330, end: 20170330
  3. INFLIXIMAB BS FOR I.V. INFUSION100 MG [NK] [Suspect]
     Active Substance: INFLIXIMAB
     Dosage: 400 MG/BODY/DAY
     Route: 042
     Dates: start: 20170707, end: 20170707
  4. ZENTACORT [Concomitant]
     Dosage: 6MG/DAY
     Route: 065
     Dates: start: 20170427, end: 20170509
  5. INFLIXIMAB BS FOR I.V. INFUSION100 MG [NK] [Suspect]
     Active Substance: INFLIXIMAB
     Dosage: 400 MG/BODY/DAY
     Route: 042
     Dates: start: 20170522, end: 20170522
  6. INFLIXIMAB BS FOR I.V. INFUSION100 MG [NK] [Suspect]
     Active Substance: INFLIXIMAB
     Dosage: 400 MG/BODY/DAY
     Route: 042
     Dates: start: 20170724, end: 20170724
  7. FERROSTEC [Concomitant]
     Active Substance: SODIUM FERROUS CITRATE
     Indication: IRON DEFICIENCY ANAEMIA
     Dosage: 150 MG/DAY
     Dates: start: 20170310, end: 20170618
  8. PENTASA [Concomitant]
     Active Substance: MESALAMINE
     Indication: CROHN^S DISEASE
     Dosage: 3500 MG/DAY
     Route: 065
     Dates: start: 20150424
  9. ZENTACORT [Concomitant]
     Indication: CROHN^S DISEASE
     Dosage: 9 MG/DAY
     Route: 065
     Dates: start: 20170215, end: 20170426
  10. IMURAN [Concomitant]
     Active Substance: AZATHIOPRINE
     Indication: CROHN^S DISEASE
     Dosage: 50 MG/DAY
     Route: 065
     Dates: start: 20160220
  11. INFLIXIMAB BS FOR I.V. INFUSION100 MG [NK] [Suspect]
     Active Substance: INFLIXIMAB
     Indication: CROHN^S DISEASE
     Dosage: 400 MG/BODY/DAY
     Route: 042
     Dates: start: 20170228, end: 20170228
  12. ELENTAL [Concomitant]
     Active Substance: AMINO ACIDS\CARBOHYDRATES\MINERALS\SOYBEAN OIL\VITAMINS
     Indication: CROHN^S DISEASE
     Dosage: 3 DF/DAY
     Route: 065

REACTIONS (3)
  - Ileus [Recovered/Resolved with Sequelae]
  - Infusion related reaction [Recovered/Resolved]
  - Inappropriate schedule of drug administration [Unknown]

NARRATIVE: CASE EVENT DATE: 20170613
